FAERS Safety Report 6287401-4 (Version None)
Quarter: 2009Q3

REPORT INFORMATION
  Report Type: 
  Country: None (occurrence: None)
  Receive Date: 20090728
  Receipt Date: 20090720
  Transmission Date: 20100115
  Serious: Yes (Death, Hospitalization)
  Sender: FDA-Public Use
  Company Number: PHEH2007US16067

PATIENT
  Sex: Female
  Weight: 49 kg

DRUGS (8)
  1. EXJADE [Suspect]
     Indication: SICKLE CELL ANAEMIA
     Dosage: 1500 MG, QD
     Route: 048
     Dates: start: 20060805
  2. EXJADE [Suspect]
     Indication: IRON OVERLOAD
  3. MOTRIN [Concomitant]
     Indication: PAIN
     Dosage: 600 MG, PRN
     Route: 048
  4. LORTAB [Concomitant]
     Indication: PAIN
     Dosage: 10 MG, PRN
     Route: 048
     Dates: end: 20071201
  5. BACLOFEN [Concomitant]
     Indication: MUSCLE SPASMS
     Dosage: 10 MG, PRN
     Route: 048
     Dates: end: 20071101
  6. FOLIC ACID [Concomitant]
     Indication: ANAEMIA
     Dosage: 1 MG, QD
     Route: 048
  7. DEPO-PROVERA [Concomitant]
     Indication: CONTRACEPTION
     Dosage: 150 MG, Q3MONTHS
     Route: 030
     Dates: end: 20071101
  8. IBUPROFEN [Concomitant]
     Indication: PAIN
     Dosage: 800 MG TID, PRN
     Dates: end: 20071201

REACTIONS (13)
  - BACK PAIN [None]
  - CARDIO-RESPIRATORY ARREST [None]
  - HAEMATOCRIT DECREASED [None]
  - HAEMOCHROMATOSIS [None]
  - HAEMOGLOBIN DECREASED [None]
  - MYALGIA [None]
  - PAIN [None]
  - RED BLOOD CELL COUNT DECREASED [None]
  - RED CELL DISTRIBUTION WIDTH INCREASED [None]
  - SICKLE CELL ANAEMIA WITH CRISIS [None]
  - TACHYCARDIA [None]
  - TREATMENT NONCOMPLIANCE [None]
  - WHITE BLOOD CELL COUNT INCREASED [None]
